FAERS Safety Report 25447587 (Version 1)
Quarter: 2025Q2

REPORT INFORMATION
  Report Type: Spontaneous
  Country: PT (occurrence: PT)
  Receive Date: 20250617
  Receipt Date: 20250617
  Transmission Date: 20250716
  Serious: Yes (Other)
  Sender: MYLAN
  Company Number: None

PATIENT
  Age: 62 Year
  Sex: Female
  Weight: 47 kg

DRUGS (24)
  1. VENLAFAXINE [Suspect]
     Active Substance: VENLAFAXINE HYDROCHLORIDE
     Indication: Depression
     Dosage: 37.5 MILLIGRAM, QD (FOR 6-7 DAYS)
     Route: 048
     Dates: start: 20250402, end: 20250408
  2. VENLAFAXINE [Suspect]
     Active Substance: VENLAFAXINE HYDROCHLORIDE
     Dosage: 37.5 MILLIGRAM, QD (FOR 6-7 DAYS)
     Dates: start: 20250402, end: 20250408
  3. VENLAFAXINE [Suspect]
     Active Substance: VENLAFAXINE HYDROCHLORIDE
     Dosage: 37.5 MILLIGRAM, QD (FOR 6-7 DAYS)
     Dates: start: 20250402, end: 20250408
  4. VENLAFAXINE [Suspect]
     Active Substance: VENLAFAXINE HYDROCHLORIDE
     Dosage: 37.5 MILLIGRAM, QD (FOR 6-7 DAYS)
     Route: 048
     Dates: start: 20250402, end: 20250408
  5. VENLAFAXINE [Suspect]
     Active Substance: VENLAFAXINE HYDROCHLORIDE
     Dosage: 75 MILLIGRAM, QD (INCREASED)
     Route: 048
     Dates: start: 20250409, end: 20250416
  6. VENLAFAXINE [Suspect]
     Active Substance: VENLAFAXINE HYDROCHLORIDE
     Dosage: 75 MILLIGRAM, QD (INCREASED)
     Dates: start: 20250409, end: 20250416
  7. VENLAFAXINE [Suspect]
     Active Substance: VENLAFAXINE HYDROCHLORIDE
     Dosage: 75 MILLIGRAM, QD (INCREASED)
     Dates: start: 20250409, end: 20250416
  8. VENLAFAXINE [Suspect]
     Active Substance: VENLAFAXINE HYDROCHLORIDE
     Dosage: 75 MILLIGRAM, QD (INCREASED)
     Route: 048
     Dates: start: 20250409, end: 20250416
  9. VENLAFAXINE [Suspect]
     Active Substance: VENLAFAXINE HYDROCHLORIDE
     Dosage: 37.5 MILLIGRAM, QD (REDUCED DOSE UNTIL DISCONTINUED)
     Route: 048
     Dates: start: 20250417, end: 20250425
  10. VENLAFAXINE [Suspect]
     Active Substance: VENLAFAXINE HYDROCHLORIDE
     Dosage: 37.5 MILLIGRAM, QD (REDUCED DOSE UNTIL DISCONTINUED)
     Route: 048
     Dates: start: 20250417, end: 20250425
  11. VENLAFAXINE [Suspect]
     Active Substance: VENLAFAXINE HYDROCHLORIDE
     Dosage: 37.5 MILLIGRAM, QD (REDUCED DOSE UNTIL DISCONTINUED)
     Dates: start: 20250417, end: 20250425
  12. VENLAFAXINE [Suspect]
     Active Substance: VENLAFAXINE HYDROCHLORIDE
     Dosage: 37.5 MILLIGRAM, QD (REDUCED DOSE UNTIL DISCONTINUED)
     Dates: start: 20250417, end: 20250425
  13. TRAZODONE HYDROCHLORIDE [Concomitant]
     Active Substance: TRAZODONE HYDROCHLORIDE
     Dosage: 50 MILLIGRAM, QD (1/2 TABLET AT BEDTIME)
  14. TRAZODONE HYDROCHLORIDE [Concomitant]
     Active Substance: TRAZODONE HYDROCHLORIDE
     Dosage: 50 MILLIGRAM, QD (1/2 TABLET AT BEDTIME)
     Route: 048
  15. TRAZODONE HYDROCHLORIDE [Concomitant]
     Active Substance: TRAZODONE HYDROCHLORIDE
     Dosage: 50 MILLIGRAM, QD (1/2 TABLET AT BEDTIME)
     Route: 048
  16. TRAZODONE HYDROCHLORIDE [Concomitant]
     Active Substance: TRAZODONE HYDROCHLORIDE
     Dosage: 50 MILLIGRAM, QD (1/2 TABLET AT BEDTIME)
  17. Losartan+hidroclorotiazida [Concomitant]
     Dosage: 1 DOSAGE FORM, QD (1 TABLET AT BEDTIME)
  18. Losartan+hidroclorotiazida [Concomitant]
     Dosage: 1 DOSAGE FORM, QD (1 TABLET AT BEDTIME)
     Route: 048
  19. Losartan+hidroclorotiazida [Concomitant]
     Dosage: 1 DOSAGE FORM, QD (1 TABLET AT BEDTIME)
     Route: 048
  20. Losartan+hidroclorotiazida [Concomitant]
     Dosage: 1 DOSAGE FORM, QD (1 TABLET AT BEDTIME)
  21. Bisacodilo [Concomitant]
  22. Bisacodilo [Concomitant]
     Route: 048
  23. Bisacodilo [Concomitant]
     Route: 048
  24. Bisacodilo [Concomitant]

REACTIONS (5)
  - Gait inability [Recovered/Resolved]
  - Diplopia [Recovered/Resolved]
  - Ataxia [Recovering/Resolving]
  - Disturbance in attention [Not Recovered/Not Resolved]
  - Balance disorder [Recovering/Resolving]

NARRATIVE: CASE EVENT DATE: 20250402
